FAERS Safety Report 6130873-6 (Version None)
Quarter: 2009Q1

REPORT INFORMATION
  Report Type: 
  Country: None (occurrence: None)
  Receive Date: 20090325
  Receipt Date: 20090323
  Transmission Date: 20090719
  Serious: Yes (Disabling)
  Sender: FDA-Public Use
  Company Number: IT-BRISTOL-MYERS SQUIBB COMPANY-14556245

PATIENT
  Age: 52 Year
  Sex: Female

DRUGS (5)
  1. COUMADIN [Suspect]
     Indication: CARDIAC VALVE PROSTHESIS USER
     Dosage: INTERRUPTED ON 09-MAR-2009
     Route: 048
     Dates: start: 20070606
  2. ASPIRIN [Suspect]
     Indication: CARDIAC VALVE PROSTHESIS USER
     Dosage: INTERRUPTED ON 09-MAR-2009
     Route: 048
     Dates: start: 20081014
  3. AMIODARONE HCL [Concomitant]
     Dosage: 200 MG TABS
     Route: 048
  4. CARDICOR [Concomitant]
     Dosage: 2.5 MG TABS
     Route: 048
  5. TRIATEC [Concomitant]
     Dosage: 2.5 MG TABS
     Route: 048

REACTIONS (2)
  - BLINDNESS [None]
  - CEREBRAL HAEMORRHAGE [None]
